FAERS Safety Report 22279190 (Version 1)
Quarter: 2023Q2

REPORT INFORMATION
  Report Type: Spontaneous
  Country: US (occurrence: None)
  Receive Date: 20230502
  Receipt Date: 20230502
  Transmission Date: 20230722
  Serious: Yes (Disabling)
  Sender: FDA-Public Use
  Company Number: None

PATIENT
  Age: 31 Year
  Sex: Female
  Weight: 54 kg

DRUGS (5)
  1. DEXTROAMPHET SACCHARAT, AMPHET ASPARTATE, DEXTROAMPHET SULFATE AND AMP [Suspect]
     Active Substance: AMPHETAMINE ASPARTATE\AMPHETAMINE ASPARTATE MONOHYDRATE\AMPHETAMINE SULFATE\DEXTROAMPHETAMINE SACCHA
     Indication: Hypersomnia
     Dosage: OTHER QUANTITY : 60 TABLET(S);?FREQUENCY : TWICE A DAY;?
     Route: 048
     Dates: start: 20230228, end: 20230502
  2. AMPHETAMINE SULFATE\DEXTROAMPHETAMINE [Concomitant]
     Active Substance: AMPHETAMINE SULFATE\DEXTROAMPHETAMINE
  3. PAROXETINE HYDROCHLORIDE [Concomitant]
     Active Substance: PAROXETINE HYDROCHLORIDE
  4. DEXTROAMPHET SACCHARAT, AMPHET ASPARTATE, DEXTROAMPHET SULFATE AND AMP [Suspect]
     Active Substance: AMPHETAMINE ASPARTATE\AMPHETAMINE ASPARTATE MONOHYDRATE\AMPHETAMINE SULFATE\DEXTROAMPHETAMINE SACCHA
     Indication: Narcolepsy
  5. DEXTROAMPHET SACCHARAT, AMPHET ASPARTATE, DEXTROAMPHET SULFATE AND AMP [Suspect]
     Active Substance: AMPHETAMINE ASPARTATE\AMPHETAMINE ASPARTATE MONOHYDRATE\AMPHETAMINE SULFATE\DEXTROAMPHETAMINE SACCHA
     Indication: Attention deficit hyperactivity disorder

REACTIONS (17)
  - Drug ineffective [None]
  - Product substitution issue [None]
  - Product availability issue [None]
  - Nausea [None]
  - Vomiting [None]
  - Abdominal pain upper [None]
  - Abdominal distension [None]
  - Dyspepsia [None]
  - Anxiety [None]
  - Panic attack [None]
  - Agoraphobia [None]
  - Depression [None]
  - Feeling of despair [None]
  - Loss of personal independence in daily activities [None]
  - Partner stress [None]
  - Fear [None]
  - Mental disorder [None]

NARRATIVE: CASE EVENT DATE: 20230228
